FAERS Safety Report 17889965 (Version 9)
Quarter: 2021Q1

REPORT INFORMATION
  Report Type: Spontaneous
  Country: US (occurrence: US)
  Receive Date: 20200612
  Receipt Date: 20210302
  Transmission Date: 20210419
  Serious: Yes (Other)
  Sender: FDA-Public Use
  Company Number: NVSC2020US163731

PATIENT
  Sex: Female

DRUGS (1)
  1. ZOLGENSMA [Suspect]
     Active Substance: ONASEMNOGENE ABEPARVOVEC-XIOI
     Indication: SPINAL MUSCULAR ATROPHY
     Dosage: 1 OT, ONCE/SINGLE
     Route: 042
     Dates: start: 20191106

REACTIONS (10)
  - Gastrointestinal haemorrhage [Unknown]
  - Eye movement disorder [Unknown]
  - Dysstasia [Unknown]
  - Hypotonia [Unknown]
  - Gastrooesophageal reflux disease [Unknown]
  - Vomiting [Unknown]
  - Aspiration [Unknown]
  - Scoliosis [Unknown]
  - Motor neurone disease [Unknown]
  - Ankle deformity [Unknown]
